FAERS Safety Report 23164412 (Version 4)
Quarter: 2024Q1

REPORT INFORMATION
  Report Type: Spontaneous
  Country: US (occurrence: US)
  Receive Date: 20231109
  Receipt Date: 20240104
  Transmission Date: 20240409
  Serious: Yes (Hospitalization, Other)
  Sender: FDA-Public Use
  Company Number: US-BAYER-2023A158143

PATIENT
  Age: 6 Year
  Sex: Male

DRUGS (1)
  1. KOVALTRY [Suspect]
     Active Substance: ANTIHEMOPHILIC FACTOR, HUMAN RECOMBINANT
     Indication: Factor VIII deficiency
     Dosage: 1250 UNITS TWICE PER WEEK (EVERY MONDAY AND FRIDAY)
     Route: 042
     Dates: start: 202303

REACTIONS (6)
  - Haemorrhage [None]
  - Peripheral swelling [None]
  - Rash [None]
  - Vascular device infection [None]
  - Peripheral swelling [None]
  - Limb injury [None]

NARRATIVE: CASE EVENT DATE: 20231102
